FAERS Safety Report 8288736-6 (Version None)
Quarter: 2012Q2

REPORT INFORMATION
  Report Type: 
  Country: None (occurrence: None)
  Receive Date: 20120417
  Receipt Date: 20120403
  Transmission Date: 20120825
  Serious: No
  Sender: FDA-Public Use
  Company Number: US-BIOGENIDEC-2012BI011970

PATIENT
  Age: 52 Year
  Sex: Male

DRUGS (3)
  1. CYMBALTA [Concomitant]
     Indication: PAIN
     Dates: start: 20120101, end: 20120301
  2. CYMBALTA [Concomitant]
     Indication: DEPRESSION
     Dates: start: 20120101, end: 20120301
  3. TYSABRI [Suspect]
     Indication: MULTIPLE SCLEROSIS
     Route: 042
     Dates: start: 20111101

REACTIONS (7)
  - PAIN IN EXTREMITY [None]
  - PARAESTHESIA [None]
  - TREMOR [None]
  - BALANCE DISORDER [None]
  - HYPOAESTHESIA [None]
  - EYE PAIN [None]
  - HEADACHE [None]
